FAERS Safety Report 20088902 (Version 1)
Quarter: 2021Q4

REPORT INFORMATION
  Report Type: Spontaneous
  Country: US (occurrence: US)
  Receive Date: 20211119
  Receipt Date: 20211119
  Transmission Date: 20220303
  Serious: No
  Sender: FDA-Public Use
  Company Number: US-ELI_LILLY_AND_COMPANY-US202111002621

PATIENT
  Sex: Female

DRUGS (3)
  1. TALTZ [Suspect]
     Active Substance: IXEKIZUMAB
     Indication: Rheumatoid arthritis
     Dosage: UNK UNK, MONTHLY (1/M)
     Route: 065
  2. TALTZ [Suspect]
     Active Substance: IXEKIZUMAB
     Dosage: UNK UNK, MONTHLY (1/M)
     Route: 065
  3. COVID-19 VACCINE [Concomitant]
     Indication: COVID-19 prophylaxis

REACTIONS (3)
  - Arthralgia [Unknown]
  - Product dose omission issue [Unknown]
  - Off label use [Unknown]
